FAERS Safety Report 5059843-6 (Version None)
Quarter: 2006Q3

REPORT INFORMATION
  Report Type: 
  Country: None (occurrence: None)
  Receive Date: 20060718
  Receipt Date: 20060712
  Transmission Date: 20061208
  Serious: Yes (Other)
  Sender: FDA-Public Use
  Company Number: 2006086002

PATIENT
  Age: 19 Year
  Sex: Male

DRUGS (1)
  1. MINOXIDIL [Suspect]
     Indication: ALOPECIA
     Dosage: 50 MG/ML TWICE DAILY THEN ONCE DAILY, TOPICAL
     Route: 061
     Dates: start: 20040601, end: 20060601

REACTIONS (2)
  - ALANINE AMINOTRANSFERASE INCREASED [None]
  - ASPARTATE AMINOTRANSFERASE INCREASED [None]
